FAERS Safety Report 17892140 (Version 1)
Quarter: 2020Q2

REPORT INFORMATION
  Report Type: Other
  Country: FR (occurrence: FR)
  Receive Date: 20200612
  Receipt Date: 20200612
  Transmission Date: 20200714
  Serious: No
  Sender: FDA-Public Use
  Company Number: FR-TOLMAR, INC.-20FR020341

PATIENT
  Age: 56 Year
  Sex: Male
  Weight: 115 kg

DRUGS (1)
  1. ELIGARD [Suspect]
     Active Substance: LEUPROLIDE ACETATE
     Indication: PROSTATE CANCER
     Dosage: 1 DOSAGE FORM, Q 3 MONTH
     Route: 030
     Dates: start: 20170601

REACTIONS (5)
  - Incorrect route of product administration [Unknown]
  - Dry mouth [Not Recovered/Not Resolved]
  - Dyskinesia [Not Recovered/Not Resolved]
  - Speech disorder [Recovered/Resolved]
  - Vertigo [Not Recovered/Not Resolved]

NARRATIVE: CASE EVENT DATE: 20170601
